FAERS Safety Report 20579323 (Version 2)
Quarter: 2022Q1

REPORT INFORMATION
  Report Type: Spontaneous
  Country: GB (occurrence: GB)
  Receive Date: 20220310
  Receipt Date: 20220316
  Transmission Date: 20220423
  Serious: Yes (Hospitalization, Other)
  Sender: FDA-Public Use
  Company Number: GB-Accord-254362

PATIENT
  Sex: Female

DRUGS (27)
  1. RITUXIMAB [Suspect]
     Active Substance: RITUXIMAB
     Indication: Diffuse large B-cell lymphoma stage IV
     Dosage: 1Q2W
     Route: 042
     Dates: start: 20220106, end: 20220106
  2. GEMCITABINE HYDROCHLORIDE [Suspect]
     Active Substance: GEMCITABINE HYDROCHLORIDE
     Indication: Diffuse large B-cell lymphoma stage IV
     Dosage: 1Q2W
     Route: 042
     Dates: start: 20220107, end: 20220107
  3. OXALIPLATIN [Suspect]
     Active Substance: OXALIPLATIN
     Indication: Diffuse large B-cell lymphoma stage IV
     Dosage: 1Q2W
     Route: 042
     Dates: start: 20220107, end: 20220107
  4. ACYCLOVIR [Concomitant]
     Active Substance: ACYCLOVIR
     Dates: start: 20220106
  5. ALLOPURINOL [Concomitant]
     Active Substance: ALLOPURINOL
     Dates: start: 20220106
  6. ATORVASTATIN [Concomitant]
     Active Substance: ATORVASTATIN
     Dates: start: 2016
  7. BECLOMETHASONE [Concomitant]
     Active Substance: BECLOMETHASONE
     Dates: start: 2010
  8. CHLORPHENIRAMINE MALEATE [Concomitant]
     Active Substance: CHLORPHENIRAMINE MALEATE
     Indication: Premedication
     Route: 042
     Dates: start: 20220106, end: 20220106
  9. CITALOPRAM [Concomitant]
     Active Substance: CITALOPRAM HYDROBROMIDE
     Dates: start: 2002
  10. COCODAMOL [Concomitant]
     Active Substance: ACETAMINOPHEN\CODEINE PHOSPHATE
     Dates: start: 2007
  11. COTRIMOXAZOLE [Concomitant]
     Active Substance: SULFAMETHOXAZOLE\TRIMETHOPRIM
     Dates: start: 20220106
  12. DEXAMETHASONE [Concomitant]
     Active Substance: DEXAMETHASONE
     Indication: Premedication
     Route: 042
     Dates: start: 20220107, end: 20220107
  13. DIGOXIN [Concomitant]
     Active Substance: DIGOXIN
     Dates: start: 202101
  14. DOCUSATE [Concomitant]
     Active Substance: DOCUSATE
     Dates: start: 20220118
  15. FUROSEMIDE [Concomitant]
     Active Substance: FUROSEMIDE
     Dates: start: 202101
  16. LANSOPRAZOLE [Concomitant]
     Active Substance: LANSOPRAZOLE
     Dates: start: 2020
  17. LEVOTHYROXINE [Concomitant]
     Active Substance: LEVOTHYROXINE
     Dates: start: 1997
  18. METOCLOPRAMIDE [Concomitant]
     Active Substance: METOCLOPRAMIDE
     Dates: start: 20220107
  19. MORPHINE [Concomitant]
     Active Substance: MORPHINE
     Dosage: UNK
     Dates: start: 20220118, end: 20220119
  20. ONDANSETRON [Concomitant]
     Active Substance: ONDANSETRON
     Dates: start: 20220107
  21. ACETAMINOPHEN [Concomitant]
     Active Substance: ACETAMINOPHEN
     Indication: Premedication
     Dosage: 1 G
     Route: 048
     Dates: start: 20220106, end: 20220106
  22. ACETAMINOPHEN [Concomitant]
     Active Substance: ACETAMINOPHEN
     Dosage: UNK
     Dates: start: 20220125
  23. RAMIPRIL [Concomitant]
     Active Substance: RAMIPRIL
     Dates: start: 202101
  24. ALBUTEROL [Concomitant]
     Active Substance: ALBUTEROL
     Dates: start: 2010
  25. ACYCLOVIR [Concomitant]
     Active Substance: ACYCLOVIR
     Dates: start: 20220106
  26. ENOXAPARIN [Concomitant]
     Active Substance: ENOXAPARIN
     Dosage: UNK
     Dates: start: 20220125, end: 20220128
  27. OXYCODONE [Concomitant]
     Active Substance: OXYCODONE
     Dosage: UNK
     Dates: start: 20220119

REACTIONS (9)
  - Lipase increased [Recovered/Resolved]
  - Amylase increased [Recovered/Resolved]
  - Alanine aminotransferase increased [Recovered/Resolved]
  - Aspartate aminotransferase increased [Recovered/Resolved]
  - Blood alkaline phosphatase increased [Not Recovered/Not Resolved]
  - Abdominal pain [Not Recovered/Not Resolved]
  - Back pain [Not Recovered/Not Resolved]
  - Off label use [Unknown]
  - Disease progression [Unknown]

NARRATIVE: CASE EVENT DATE: 20220119
